FAERS Safety Report 15981448 (Version 1)
Quarter: 2019Q1

REPORT INFORMATION
  Report Type: Report from Study
  Country: US (occurrence: US)
  Receive Date: 20190219
  Receipt Date: 20190219
  Transmission Date: 20190418
  Serious: Yes (Other)
  Sender: FDA-Public Use
  Company Number: PHEH2019US006799

PATIENT
  Sex: Female

DRUGS (1)
  1. COSENTYX [Suspect]
     Active Substance: SECUKINUMAB
     Indication: PSORIASIS
     Dosage: 300 MG, UNK (AT DAY 28 THEN EVERY 4 WEEKS AS DIRECTED)
     Route: 058
     Dates: start: 201901

REACTIONS (3)
  - Lymphadenopathy [Unknown]
  - Myocardial ischaemia [Unknown]
  - Ear infection [Unknown]
